FAERS Safety Report 25865737 (Version 1)
Quarter: 2025Q3

REPORT INFORMATION
  Report Type: Spontaneous
  Country: US (occurrence: US)
  Receive Date: 20250930
  Receipt Date: 20250930
  Transmission Date: 20251021
  Serious: Yes (Hospitalization)
  Sender: INCYTE
  Company Number: US-002147023-NVSC2025US150187

PATIENT
  Age: 66 Year

DRUGS (6)
  1. JAKAFI [Suspect]
     Active Substance: RUXOLITINIB
     Indication: VEXAS syndrome
     Route: 065
  2. JAKAFI [Suspect]
     Active Substance: RUXOLITINIB
     Route: 065
  3. JAKAFI [Suspect]
     Active Substance: RUXOLITINIB
     Route: 065
  4. JAKAFI [Suspect]
     Active Substance: RUXOLITINIB
     Route: 065
  5. AZACITIDINE [Suspect]
     Active Substance: AZACITIDINE
     Indication: VEXAS syndrome
     Route: 065
  6. AZACITIDINE [Suspect]
     Active Substance: AZACITIDINE
     Route: 065

REACTIONS (2)
  - Disease progression [Unknown]
  - VEXAS syndrome [Unknown]
